FAERS Safety Report 19313387 (Version 1)
Quarter: 2021Q2

REPORT INFORMATION
  Report Type: Spontaneous
  Country: CA (occurrence: CA)
  Receive Date: 20210527
  Receipt Date: 20210527
  Transmission Date: 20210717
  Serious: Yes (Other)
  Sender: FDA-Public Use
  Company Number: None

PATIENT
  Age: 53 Year
  Sex: Female
  Weight: 87.75 kg

DRUGS (6)
  1. KINERET [Concomitant]
     Active Substance: ANAKINRA
  2. NALDOLOL [Concomitant]
  3. DEXILANT [Concomitant]
     Active Substance: DEXLANSOPRAZOLE
  4. OCALIVA [Suspect]
     Active Substance: OBETICHOLIC ACID
     Indication: PRIMARY BILIARY CHOLANGITIS
     Dates: start: 20210101, end: 20210404
  5. URSO [Concomitant]
     Active Substance: URSODIOL
  6. RIFAXIMIN. [Concomitant]
     Active Substance: RIFAXIMIN

REACTIONS (2)
  - Hepatic encephalopathy [None]
  - Gastrointestinal haemorrhage [None]

NARRATIVE: CASE EVENT DATE: 20210325
